FAERS Safety Report 5872956-1 (Version None)
Quarter: 2008Q3

REPORT INFORMATION
  Report Type: 
  Country: None (occurrence: None)
  Receive Date: 20080905
  Receipt Date: 20080826
  Transmission Date: 20090109
  Serious: Yes (Other)
  Sender: FDA-Public Use
  Company Number: US-PFIZER INC-2008071665

PATIENT
  Sex: Female

DRUGS (2)
  1. ZYVOX [Suspect]
     Indication: INFECTION
  2. INVANZ [Concomitant]

REACTIONS (8)
  - ANAEMIA [None]
  - BIOPSY BONE MARROW ABNORMAL [None]
  - HAEMORRHAGE [None]
  - HAEMORRHOIDS [None]
  - HYPOVOLAEMIA [None]
  - MALNUTRITION [None]
  - PANCREATITIS ACUTE [None]
  - THROMBOCYTOPENIA [None]
